FAERS Safety Report 14395567 (Version 1)
Quarter: 2018Q1

REPORT INFORMATION
  Report Type: Spontaneous
  Country: US (occurrence: US)
  Receive Date: 20180116
  Receipt Date: 20180116
  Transmission Date: 20180509
  Serious: No
  Sender: FDA-Public Use
  Company Number: US-ALLERGAN-1711640US

PATIENT
  Age: 61 Year
  Sex: Female

DRUGS (3)
  1. BOTOX [Suspect]
     Active Substance: ONABOTULINUMTOXINA
     Indication: MIGRAINE
     Dosage: UNK, SINGLE
     Route: 030
     Dates: start: 20170310, end: 20170310
  2. CALCIUM [Concomitant]
     Active Substance: CALCIUM
  3. FISH OIL [Concomitant]
     Active Substance: FISH OIL

REACTIONS (4)
  - Injection site bruising [Unknown]
  - Neck pain [Not Recovered/Not Resolved]
  - Injection site pain [Unknown]
  - Eyelid ptosis [Not Recovered/Not Resolved]

NARRATIVE: CASE EVENT DATE: 20170310
